FAERS Safety Report 7067412-1 (Version None)
Quarter: 2010Q4

REPORT INFORMATION
  Report Type: 
  Country: None (occurrence: None)
  Receive Date: 20101026
  Receipt Date: 20101026
  Transmission Date: 20110411
  Serious: Yes (Hospitalization, Other)
  Sender: FDA-Public Use
  Company Number: None

PATIENT
  Age: 22 Year
  Sex: Female
  Weight: 127.0072 kg

DRUGS (1)
  1. YASMIN [Suspect]
     Indication: MENSTRUATION IRREGULAR
     Dosage: 1 DAILY PO
     Route: 048
     Dates: start: 20071101

REACTIONS (9)
  - CHOLELITHIASIS [None]
  - COSTOCHONDRITIS [None]
  - DYSPEPSIA [None]
  - DYSPNOEA [None]
  - HIATUS HERNIA [None]
  - MIDDLE INSOMNIA [None]
  - PANCREATITIS [None]
  - PRESYNCOPE [None]
  - VOMITING [None]
